FAERS Safety Report 9207506 (Version 1)
Quarter: 2013Q1

REPORT INFORMATION
  Report Type: Spontaneous
  Country: US (occurrence: None)
  Receive Date: 20120809
  Receipt Date: 20120809
  Transmission Date: 20140127
  Serious: Yes (Other)
  Sender: FDA-Public Use
  Company Number: 2011US003677

PATIENT
  Age: 74 Year
  Sex: Female
  Weight: 52 kg

DRUGS (4)
  1. VESICARE [Suspect]
     Indication: PRODUCT USED FOR UNKNOWN INDICATION
     Route: 048
  2. VESICARE [Suspect]
     Indication: HYPERTONIC BLADDER
     Route: 048
  3. TOVIAZ [Suspect]
     Indication: PRODUCT USED FOR UNKNOWN INDICATION
     Route: 048
     Dates: start: 20110608, end: 20110608
  4. TOVIAZ [Suspect]
     Indication: HYPERTONIC BLADDER
     Route: 048
     Dates: start: 20110608, end: 20110608

REACTIONS (6)
  - Swelling face [None]
  - Lip swelling [None]
  - Bladder spasm [None]
  - Balance disorder [None]
  - Hangover [None]
  - Dizziness [None]
